FAERS Safety Report 12569065 (Version 1)
Quarter: 2016Q3

REPORT INFORMATION
  Report Type: Spontaneous
  Country: ES (occurrence: ES)
  Receive Date: 20160719
  Receipt Date: 20160719
  Transmission Date: 20161109
  Serious: Yes (Life-Threatening, Hospitalization, Other)
  Sender: FDA-Public Use
  Company Number: ES-MACLEODS PHARMACEUTICALS US LTD-MAC2016002913

PATIENT

DRUGS (6)
  1. OLANZAPINE. [Suspect]
     Active Substance: OLANZAPINE
     Indication: BIPOLAR DISORDER
     Dosage: UNK
     Route: 065
  2. DULOXETINE. [Interacting]
     Active Substance: DULOXETINE
     Indication: BIPOLAR DISORDER
  3. PHENELZINE [Interacting]
     Active Substance: PHENELZINE
     Indication: DEPRESSION
  4. OLANZAPINE. [Interacting]
     Active Substance: OLANZAPINE
     Indication: DEPRESSION
  5. PHENELZINE [Interacting]
     Active Substance: PHENELZINE
     Indication: BIPOLAR DISORDER
     Dosage: UNK
     Route: 065
  6. DULOXETINE. [Interacting]
     Active Substance: DULOXETINE
     Indication: DEPRESSION
     Dosage: UNK
     Route: 065

REACTIONS (6)
  - Drug interaction [Recovering/Resolving]
  - Serotonin syndrome [Recovering/Resolving]
  - Musculoskeletal stiffness [Recovering/Resolving]
  - Sedation [Recovering/Resolving]
  - Depressed level of consciousness [Recovered/Resolved]
  - Hypokinesia [Recovering/Resolving]
